FAERS Safety Report 21363388 (Version 3)
Quarter: 2022Q4

REPORT INFORMATION
  Report Type: Spontaneous
  Country: DE (occurrence: DE)
  Receive Date: 20220922
  Receipt Date: 20221208
  Transmission Date: 20230113
  Serious: Yes (Other)
  Sender: FDA-Public Use
  Company Number: DE-002147023-NVSC2022DE209945

PATIENT
  Sex: Male

DRUGS (3)
  1. XOLAIR [Suspect]
     Active Substance: OMALIZUMAB
     Indication: Product used for unknown indication
     Route: 058
  2. GLYCOPYRROLATE\INDACATEROL\MOMETASONE FUROATE [Suspect]
     Active Substance: GLYCOPYRROLATE\INDACATEROL\MOMETASONE FUROATE
     Indication: Asthma
     Dates: start: 202207, end: 202208
  3. VIGANTOL [Concomitant]
     Indication: Product used for unknown indication
     Dosage: STRENGTH 20000 I.E

REACTIONS (21)
  - Bronchiectasis [Unknown]
  - Pulmonary arterial hypertension [Unknown]
  - Pneumonia [Unknown]
  - Pain in extremity [Unknown]
  - Dyspnoea [Unknown]
  - Bronchial disorder [Unknown]
  - Cough [Unknown]
  - Productive cough [Not Recovered/Not Resolved]
  - Arthralgia [Unknown]
  - Dysuria [Not Recovered/Not Resolved]
  - Benign prostatic hyperplasia [Unknown]
  - Conjunctivitis allergic [Unknown]
  - Aortic aneurysm [Not Recovered/Not Resolved]
  - Gastrooesophageal reflux disease [Unknown]
  - Gout [Unknown]
  - Herpes zoster [Recovered/Resolved]
  - Emphysema [Unknown]
  - Blister [Unknown]
  - Hyperkeratosis [Unknown]
  - Bronchitis [Unknown]
  - Drug effect less than expected [Unknown]

NARRATIVE: CASE EVENT DATE: 20220801
